FAERS Safety Report 17668274 (Version 2)
Quarter: 2020Q2

REPORT INFORMATION
  Report Type: Spontaneous
  Country: ES (occurrence: ES)
  Receive Date: 20200414
  Receipt Date: 20200501
  Transmission Date: 20200713
  Serious: Yes (Other)
  Sender: FDA-Public Use
  Company Number: ES-AUROBINDO-AUR-APL-2020-018206

PATIENT
  Age: 52 Year
  Sex: Male

DRUGS (10)
  1. PREDNISOLONE. [Suspect]
     Active Substance: PREDNISOLONE
     Indication: POSTOPERATIVE CARE
     Dosage: 1 DOSAGE FORM, EVERY WEEK, (10 MG/ML, WEEKLY)
     Route: 065
  2. DICLOFENAC SODIUM. [Suspect]
     Active Substance: DICLOFENAC SODIUM
     Indication: POSTOPERATIVE CARE
     Dosage: 1 DOSAGE FORM, 3 TIMES A DAY
     Route: 065
     Dates: start: 2012
  3. MITOMYCIN C [Suspect]
     Active Substance: MITOMYCIN
     Indication: INTRAOPERATIVE CARE
     Dosage: 0.2 MILLIGRAM/MILLILITRE, (0.2 MILLIGRAM/MILLILITRE, APPLIED FOR 90 S)
     Route: 065
  4. MOXIFLOXACIN. [Suspect]
     Active Substance: MOXIFLOXACIN
     Indication: POSTOPERATIVE CARE
     Dosage: 1 DOSAGE FORM, FOUR TIMES/DAY, (5 MG/ML, QID )
     Route: 065
     Dates: start: 2012
  5. SODIUM HYALURONATE [Concomitant]
     Active Substance: HYALURONATE SODIUM
     Indication: INTRAOPERATIVE CARE
     Dosage: 10 MILLIGRAM/MILILITER,  INTO THE ANTERIOR CHAMBER
     Route: 065
  6. PREDNISOLONE. [Suspect]
     Active Substance: PREDNISOLONE
     Dosage: 10 MILLIGRAM/MILLILITRE, 7 DAY, (10MG/ML STARTING 6 TIMES DAILY AND TAPERED 1 DROP PER WEEK)
     Route: 065
  7. MOXIFLOXACIN. [Suspect]
     Active Substance: MOXIFLOXACIN
     Indication: POSTOPERATIVE CARE
     Dosage: UNK, 0.1ML OF 5MG/ML
     Route: 065
     Dates: start: 2012
  8. PREDNISOLONE. [Suspect]
     Active Substance: PREDNISOLONE
     Dosage: 1 DOSAGE FORM, EVERY FOUR HOUR, ( EVERY FOUR HOUR), (10 MG/ML, Q4H)
     Route: 065
     Dates: start: 2012
  9. DICLOFENAC SODIUM. [Suspect]
     Active Substance: DICLOFENAC SODIUM
     Dosage: 1 MILLIGRAM/MILLILITRE, 3 TIMES A DAY, (1MG/ML 1 DROP THREE TIMES DAILY FOR TWO WEEKS)
     Route: 065
  10. MOXIFLOXACIN. [Suspect]
     Active Substance: MOXIFLOXACIN
     Indication: POSTOPERATIVE CARE
     Dosage: UNK UNK, FOUR TIMES/DAY, ( (0.1ML OF 5MG/ML, 5MG/ML 1 DROP 4 TIMES DAILY FOR TEN DAYS))
     Route: 065
     Dates: start: 2012

REACTIONS (1)
  - Iris hypopigmentation [Recovering/Resolving]
